FAERS Safety Report 5147973-X (Version None)
Quarter: 2006Q4

REPORT INFORMATION
  Report Type: 
  Country: None (occurrence: None)
  Receive Date: 20061106
  Receipt Date: 20061004
  Transmission Date: 20070319
  Serious: Yes (Hospitalization, Other)
  Sender: FDA-Public Use
  Company Number: 2006021087

PATIENT
  Age: 44 Year
  Sex: Male
  Weight: 106.5953 kg

DRUGS (1)
  1. CELEBREX [Suspect]
     Indication: BACK DISORDER
     Dosage: 200 MG
     Dates: start: 19990201

REACTIONS (5)
  - ACTIVITIES OF DAILY LIVING IMPAIRED [None]
  - ANXIETY [None]
  - DEEP VEIN THROMBOSIS [None]
  - DEPRESSION [None]
  - FEAR [None]
